FAERS Safety Report 5410555-6 (Version None)
Quarter: 2007Q3

REPORT INFORMATION
  Report Type: 
  Country: None (occurrence: None)
  Receive Date: 20070810
  Receipt Date: 20070301
  Transmission Date: 20080115
  Serious: No
  Sender: FDA-Public Use
  Company Number: A0641495A

PATIENT
  Age: 59 Year
  Sex: Male

DRUGS (4)
  1. PAXIL [Suspect]
     Indication: INSOMNIA
     Dosage: 40MG PER DAY
     Route: 048
  2. NEURONTIN [Concomitant]
  3. VICODIN [Concomitant]
  4. MULTI-VITAMIN [Concomitant]

REACTIONS (2)
  - CHILLS [None]
  - HYPERHIDROSIS [None]
